FAERS Safety Report 16909565 (Version 1)
Quarter: 2019Q4

REPORT INFORMATION
  Report Type: Spontaneous
  Country: US (occurrence: US)
  Receive Date: 20191011
  Receipt Date: 20191011
  Transmission Date: 20200122
  Serious: Yes (Other)
  Sender: FDA-Public Use
  Company Number: US-VERTEX PHARMACEUTICALS-2019-009778

PATIENT

DRUGS (1)
  1. ORKAMBI [Suspect]
     Active Substance: IVACAFTOR\LUMACAFTOR
     Indication: CYSTIC FIBROSIS
     Route: 048

REACTIONS (10)
  - Pregnancy [Unknown]
  - Chest discomfort [Unknown]
  - Nausea [Unknown]
  - Dermatitis allergic [Unknown]
  - Abdominal discomfort [Unknown]
  - Transaminases increased [Recovered/Resolved]
  - Pericarditis [Unknown]
  - Drug interaction [Unknown]
  - Dyspnoea [Unknown]
  - Lung transplant [Unknown]
